FAERS Safety Report 8599296-4 (Version None)
Quarter: 2012Q3

REPORT INFORMATION
  Report Type: 
  Country: None (occurrence: None)
  Receive Date: 20120816
  Receipt Date: 20120806
  Transmission Date: 20120928
  Serious: No
  Sender: FDA-Public Use
  Company Number: US-ASTRAZENECA-2012SE55771

PATIENT
  Age: 54 Year
  Sex: Female

DRUGS (3)
  1. VIMOVO [Suspect]
     Route: 048
  2. PAIN SHOT [Suspect]
     Route: 065
  3. NEXIUM [Suspect]
     Route: 048

REACTIONS (2)
  - ARTHRITIS [None]
  - FEELING ABNORMAL [None]
